FAERS Safety Report 15574497 (Version 1)
Quarter: 2018Q4

REPORT INFORMATION
  Report Type: Other
  Country: ES (occurrence: ES)
  Receive Date: 20181101
  Receipt Date: 20181101
  Transmission Date: 20190205
  Serious: Yes (Hospitalization, Other)
  Sender: FDA-Public Use
  Company Number: ES-APOTEX-2018AP023505

PATIENT
  Age: 85 Year
  Sex: Female

DRUGS (5)
  1. PREDNISON [Concomitant]
     Active Substance: PREDNISONE
     Indication: PRODUCT USED FOR UNKNOWN INDICATION
     Dosage: 7.5 MG, BID, 1 CP DIAS ALTERNOS CON 1/2 CP
     Route: 048
     Dates: start: 20140101
  2. SERTRALINE [Suspect]
     Active Substance: SERTRALINE HYDROCHLORIDE
     Indication: PRODUCT USED FOR UNKNOWN INDICATION
     Dosage: 50 MG, QD, 50 MG DIA
     Route: 048
     Dates: start: 20150828, end: 20170617
  3. QUETIAPINE. [Interacting]
     Active Substance: QUETIAPINE
     Indication: PRODUCT USED FOR UNKNOWN INDICATION
     Dosage: 25 MG, QD, 0-0-1
     Route: 048
     Dates: start: 20150828
  4. BONVIVA [Concomitant]
     Active Substance: IBANDRONATE SODIUM
     Indication: PRODUCT USED FOR UNKNOWN INDICATION
     Dosage: 150 MG, QD, 150 MG AL MES
     Route: 065
     Dates: start: 20140101
  5. SINEMET PLUS [Interacting]
     Active Substance: CARBIDOPA\LEVODOPA
     Indication: PRODUCT USED FOR UNKNOWN INDICATION
     Dosage: 1 DF, UNK, EVERY EIGHT HOUR, 1-1/2-1
     Route: 048
     Dates: start: 20150828

REACTIONS (2)
  - Dehydration [Recovered/Resolved]
  - Acute kidney injury [Recovered/Resolved]

NARRATIVE: CASE EVENT DATE: 20170617
